FAERS Safety Report 24718720 (Version 3)
Quarter: 2025Q1

REPORT INFORMATION
  Report Type: Report from Study
  Country: US (occurrence: US)
  Receive Date: 20241210
  Receipt Date: 20250203
  Transmission Date: 20250409
  Serious: Yes (Hospitalization, Other)
  Sender: MYLAN
  Company Number: US-MYLANLABS-2024M1107757

PATIENT
  Age: 0 Year
  Sex: Male

DRUGS (18)
  1. SILDENAFIL CITRATE [Suspect]
     Active Substance: SILDENAFIL CITRATE
     Indication: Product used for unknown indication
     Dosage: 2.75 MILLIGRAMS, QD (0.750 MG AT 1 AM, 1 MG AT 9 AM, 1 MG AT 5 PM)
     Dates: start: 20240226
  2. SILDENAFIL CITRATE [Suspect]
     Active Substance: SILDENAFIL CITRATE
     Dosage: 0.125 MILLIGRAM, BID (0.125 MG AT 9 AM, 0.125 AT 5 PM)
     Dates: start: 20240918
  3. SILDENAFIL CITRATE [Suspect]
     Active Substance: SILDENAFIL CITRATE
     Dosage: 0.125 MILLIGRAM, TID (0.125 MG AT 1 AM, 9 AM, 5 PM)
     Dates: start: 20240919
  4. SILDENAFIL CITRATE [Suspect]
     Active Substance: SILDENAFIL CITRATE
     Dosage: 0.625 MILLIGRAM, QD (0.125 MG AT 1 AM, 0.250 MG AT 9 AM, 0.250 MG AT 5 PM)
     Dates: start: 20240920
  5. SILDENAFIL CITRATE [Suspect]
     Active Substance: SILDENAFIL CITRATE
     Dosage: 0.250 MILLIGRAM, TID (0.250 MG AT 1 AM, 9 AM, 5 PM)
     Dates: start: 20240921
  6. SILDENAFIL CITRATE [Suspect]
     Active Substance: SILDENAFIL CITRATE
     Dosage: 1.250 MILLIGRAM, QD (0.250 MG AT 1 AM, 0.500 MG AT 9 AM, 0.500 MG AT 5 PM)
     Dates: start: 20240922
  7. SILDENAFIL CITRATE [Suspect]
     Active Substance: SILDENAFIL CITRATE
     Dosage: 0.500 MILLIGRAM, TID (0.500 MG AT 1 AM, 9 AM, 5 PM)
     Dates: start: 20240923
  8. SILDENAFIL CITRATE [Suspect]
     Active Substance: SILDENAFIL CITRATE
     Dosage: 2 MILLIGRAMS, QD (0.500 MG AT 1 AM, 0.750 MG AT 9 AM, 0.750 MG AT 5 PM)
     Dates: start: 20240924
  9. SILDENAFIL CITRATE [Suspect]
     Active Substance: SILDENAFIL CITRATE
     Dosage: 0.750 MILLIGRAM, TID (0.750 MG AT 1 AM, 9 AM, 5 PM)
     Dates: start: 20240925
  10. FUROSEMIDE [Concomitant]
     Active Substance: FUROSEMIDE
     Indication: Product used for unknown indication
     Route: 065
  11. HYDROCORTISONE [Concomitant]
     Active Substance: HYDROCORTISONE
     Route: 065
  12. DEXMEDETOMIDINE [Concomitant]
     Active Substance: DEXMEDETOMIDINE
     Route: 065
  13. SODIUM CHLORIDE [Concomitant]
     Active Substance: SODIUM CHLORIDE
     Route: 065
  14. DEXTROSE [Concomitant]
     Active Substance: DEXTROSE MONOHYDRATE
     Route: 065
  15. MORPHINE [Concomitant]
     Active Substance: MORPHINE
     Route: 065
  16. CAFFEINE CITRATE [Concomitant]
     Active Substance: CAFFEINE CITRATE
     Route: 065
  17. ALBUTEROL [Concomitant]
     Active Substance: ALBUTEROL
     Route: 065
  18. FLOVENT [Concomitant]
     Active Substance: FLUTICASONE PROPIONATE
     Route: 065

REACTIONS (1)
  - Pneumonia [Recovered/Resolved]

NARRATIVE: CASE EVENT DATE: 20240919
